FAERS Safety Report 10098585 (Version 1)
Quarter: 2014Q2

REPORT INFORMATION
  Report Type: Spontaneous
  Country: CA (occurrence: CA)
  Receive Date: 20140423
  Receipt Date: 20140423
  Transmission Date: 20141212
  Serious: Yes (Hospitalization)
  Sender: FDA-Public Use
  Company Number: CA-009507513-1404CAN011619

PATIENT
  Age: 67 Year
  Sex: Female

DRUGS (4)
  1. SINGULAIR [Suspect]
     Indication: ASTHMA
     Dosage: 10 MG DAILY
     Route: 048
     Dates: start: 20060822
  2. SYMBICORT [Concomitant]
     Dosage: 1 PUFF, BID
  3. NOVOLIN 30/70 [Concomitant]
     Dosage: UNK, BID
  4. METFORMIN [Concomitant]
     Dosage: 500 MG, BID

REACTIONS (3)
  - Tooth infection [Recovered/Resolved]
  - Facial pain [Recovered/Resolved]
  - Swelling face [Recovered/Resolved]
